FAERS Safety Report 16667534 (Version 1)
Quarter: 2019Q3

REPORT INFORMATION
  Report Type: Report from Study
  Country: US (occurrence: US)
  Receive Date: 20190805
  Receipt Date: 20190805
  Transmission Date: 20191004
  Serious: Yes (Hospitalization)
  Sender: FDA-Public Use
  Company Number: US-BAUSCH-BL-2019-021955

PATIENT
  Sex: Male

DRUGS (2)
  1. XIFAXAN [Suspect]
     Active Substance: RIFAXIMIN
     Indication: CIRRHOSIS ALCOHOLIC
     Dosage: STARTED IN 2016 OR 2017
     Route: 048
     Dates: end: 2019
  2. XIFAXAN [Suspect]
     Active Substance: RIFAXIMIN
     Dosage: 1 TABLET EVERY 2-3 DAYS
     Route: 048
     Dates: start: 2019

REACTIONS (2)
  - Cardiac failure [Unknown]
  - Product use issue [Unknown]

NARRATIVE: CASE EVENT DATE: 2019
